FAERS Safety Report 25317802 (Version 1)
Quarter: 2025Q2

REPORT INFORMATION
  Report Type: Spontaneous
  Country: HR (occurrence: HR)
  Receive Date: 20250515
  Receipt Date: 20250515
  Transmission Date: 20250717
  Serious: Yes (Hospitalization)
  Sender: ROCHE
  Company Number: HR-BoehringerIngelheim-2025-BI-025999

PATIENT
  Age: 49 Year
  Sex: Female

DRUGS (1)
  1. ALTEPLASE [Suspect]
     Active Substance: ALTEPLASE
     Indication: Thrombolysis
     Route: 065

REACTIONS (6)
  - Coronary artery stenosis [Recovering/Resolving]
  - Cardiac arrest [Recovered/Resolved]
  - Pulseless electrical activity [Recovered/Resolved]
  - Right ventricular dilatation [Recovered/Resolved]
  - Tricuspid valve incompetence [Recovered/Resolved]
  - Pulmonary arterial pressure increased [Recovered/Resolved]
